FAERS Safety Report 17992213 (Version 2)
Quarter: 2020Q3

REPORT INFORMATION
  Report Type: Spontaneous
  Country: US (occurrence: US)
  Receive Date: 20200707
  Receipt Date: 20200728
  Transmission Date: 20201103
  Serious: Yes (Death, Other)
  Sender: FDA-Public Use
  Company Number: US-GILEAD-2020-0479521

PATIENT
  Age: 50 Year
  Sex: Male
  Weight: 88.8 kg

DRUGS (22)
  1. AZITHROMYCIN ANHYDROUS. [Concomitant]
     Active Substance: AZITHROMYCIN ANHYDROUS
  2. PANTOPRAZOLE [Concomitant]
     Active Substance: PANTOPRAZOLE
  3. VANCOMYCIN [Concomitant]
     Active Substance: VANCOMYCIN
     Route: 042
  4. ALBUTEROL [SALBUTAMOL] [Concomitant]
     Active Substance: ALBUTEROL
  5. NOREPINEPHRINE. [Concomitant]
     Active Substance: NOREPINEPHRINE
  6. DEXAMETHASONE. [Concomitant]
     Active Substance: DEXAMETHASONE
  7. CISATRACURIUM. [Concomitant]
     Active Substance: CISATRACURIUM
  8. MIDAZOLAM. [Concomitant]
     Active Substance: MIDAZOLAM
  9. REMDESIVIR. [Suspect]
     Active Substance: REMDESIVIR
     Indication: COVID-19
     Dosage: 100 MG, QD
     Route: 042
     Dates: start: 20200628, end: 20200702
  10. ENOXAPARIN [Concomitant]
     Active Substance: ENOXAPARIN
  11. METOPROLOL. [Concomitant]
     Active Substance: METOPROLOL
  12. SODIUM BICARBONATE. [Concomitant]
     Active Substance: SODIUM BICARBONATE
  13. EPOPROSTENOL. [Concomitant]
     Active Substance: EPOPROSTENOL
  14. ACETAMINOPHEN. [Concomitant]
     Active Substance: ACETAMINOPHEN
  15. ALPRAZOLAM. [Concomitant]
     Active Substance: ALPRAZOLAM
  16. BENZONATATE. [Concomitant]
     Active Substance: BENZONATATE
  17. CEFTRIAXONE. [Concomitant]
     Active Substance: CEFTRIAXONE
  18. INSULIN LISPRO [Concomitant]
     Active Substance: INSULIN LISPRO
  19. LISINOPRIL. [Concomitant]
     Active Substance: LISINOPRIL
  20. EPINEPHRINE. [Concomitant]
     Active Substance: EPINEPHRINE
  21. HYDROMORPHONE [Concomitant]
     Active Substance: HYDROMORPHONE
  22. VASOPRESSIN. [Concomitant]
     Active Substance: VASOPRESSIN

REACTIONS (1)
  - Liver function test increased [Fatal]

NARRATIVE: CASE EVENT DATE: 20200701
